FAERS Safety Report 5089154-4 (Version None)
Quarter: 2006Q3

REPORT INFORMATION
  Report Type: 
  Country: None (occurrence: None)
  Receive Date: 20060822
  Receipt Date: 20060807
  Transmission Date: 20061208
  Serious: Yes (Death)
  Sender: FDA-Public Use
  Company Number: DSA_70925_2006

PATIENT
  Sex: Female

DRUGS (1)
  1. DARVON/DARVON COMPOUND 65 [Suspect]

REACTIONS (3)
  - INTENTIONAL DRUG MISUSE [None]
  - POISONING DELIBERATE [None]
  - VICTIM OF HOMICIDE [None]
